FAERS Safety Report 9866772 (Version 2)
Quarter: 2014Q1

REPORT INFORMATION
  Report Type: Spontaneous
  Country: IT (occurrence: IT)
  Receive Date: 20140204
  Receipt Date: 20140325
  Transmission Date: 20141002
  Serious: Yes (Other)
  Sender: FDA-Public Use
  Company Number: IT-JNJFOC-20140117621

PATIENT
  Age: 57 Year
  Sex: Female
  Weight: 44 kg

DRUGS (12)
  1. CAELYX [Suspect]
     Indication: OVARIAN CANCER RECURRENT
     Route: 042
     Dates: start: 20130806, end: 20131126
  2. CAELYX [Suspect]
     Indication: OVARIAN CANCER RECURRENT
     Route: 042
     Dates: start: 20130917
  3. CAELYX [Suspect]
     Indication: OVARIAN CANCER RECURRENT
     Route: 042
     Dates: start: 20130806
  4. CAELYX [Suspect]
     Indication: OVARIAN CANCER RECURRENT
     Route: 042
  5. CAELYX [Suspect]
     Indication: OVARIAN CANCER RECURRENT
     Route: 042
     Dates: start: 20130827
  6. YONDELIS [Suspect]
     Indication: OVARIAN CANCER RECURRENT
     Route: 042
  7. YONDELIS [Suspect]
     Indication: OVARIAN CANCER RECURRENT
     Route: 042
     Dates: start: 20130806, end: 20130826
  8. YONDELIS [Suspect]
     Indication: OVARIAN CANCER RECURRENT
     Route: 042
  9. GRANISETRON [Concomitant]
     Indication: PREMEDICATION
     Route: 042
     Dates: start: 20130806, end: 20131126
  10. ZANTAC [Concomitant]
     Indication: PREMEDICATION
     Route: 042
     Dates: start: 20130806, end: 20131126
  11. DEXAMETHASONE PHOSPHATE [Concomitant]
     Indication: PREMEDICATION
     Route: 042
     Dates: start: 20130806, end: 20131126
  12. OMEPRAZOLE [Concomitant]
     Indication: PRODUCT USED FOR UNKNOWN INDICATION
     Route: 048

REACTIONS (3)
  - Chest pain [Recovered/Resolved]
  - Troponin increased [Recovered/Resolved]
  - Iatrogenic injury [Unknown]
